FAERS Safety Report 9895058 (Version 2)
Quarter: 2014Q1

REPORT INFORMATION
  Report Type: Spontaneous
  Country: US (occurrence: US)
  Receive Date: 20140213
  Receipt Date: 20140213
  Transmission Date: 20141002
  Serious: No
  Sender: FDA-Public Use
  Company Number: US-BRISTOL-MYERS SQUIBB COMPANY-17472655

PATIENT
  Age: 12 Year
  Sex: Female
  Weight: 83.44 kg

DRUGS (1)
  1. ABATACEPT SUBQ INJECTION 125MG/ML [Suspect]
     Indication: JUVENILE IDIOPATHIC ARTHRITIS
     Dosage: LAST INJECTION: 11MAR2013, 25-MAR-2013, EXP DT: FEB2014
     Route: 058
     Dates: start: 201212

REACTIONS (2)
  - Medication error [Unknown]
  - Product quality issue [Unknown]
